FAERS Safety Report 5992946-8 (Version None)
Quarter: 2008Q4

REPORT INFORMATION
  Report Type: 
  Country: None (occurrence: None)
  Receive Date: 20081212
  Receipt Date: 20081205
  Transmission Date: 20090506
  Serious: Yes (Death)
  Sender: FDA-Public Use
  Company Number: US-CELGENEUS-163-21880-08100528

PATIENT
  Sex: Male

DRUGS (2)
  1. REVLIMID [Suspect]
     Indication: MYELODYSPLASTIC SYNDROME
     Route: 048
     Dates: start: 20080626, end: 20080101
  2. REVLIMID [Suspect]
     Route: 048
     Dates: start: 20080506, end: 20080601

REACTIONS (1)
  - CEREBROVASCULAR ACCIDENT [None]
